FAERS Safety Report 12396952 (Version 1)
Quarter: 2016Q2

REPORT INFORMATION
  Report Type: Spontaneous
  Country: US (occurrence: None)
  Receive Date: 20160523
  Receipt Date: 20160523
  Transmission Date: 20160815
  Serious: Yes (Hospitalization, Disabling, Other)
  Sender: FDA-Public Use
  Company Number: None

PATIENT
  Age: 72 Year
  Sex: Female
  Weight: 95.26 kg

DRUGS (10)
  1. METFORMIN [Concomitant]
     Active Substance: METFORMIN HYDROCHLORIDE
  2. SIMVASTATIN. [Concomitant]
     Active Substance: SIMVASTATIN
  3. LEVOTHYROXIN [Concomitant]
     Active Substance: LEVOTHYROXINE
  4. GLIPIZIDE. [Concomitant]
     Active Substance: GLIPIZIDE
  5. OMEGA-3 FISH OIL [Concomitant]
     Active Substance: FISH OIL\OMEGA-3 FATTY ACIDS
  6. BYDUREON [Suspect]
     Active Substance: EXENATIDE
     Indication: DIABETES MELLITUS
     Route: 030
  7. AMLODIPINE [Concomitant]
     Active Substance: AMLODIPINE BESYLATE
  8. LOSARTAN/HCTZ [Concomitant]
     Active Substance: HYDROCHLOROTHIAZIDE\LOSARTAN
  9. MULTIVITAMIN [Concomitant]
     Active Substance: VITAMINS
  10. ASPIRIN. [Concomitant]
     Active Substance: ASPIRIN

REACTIONS (5)
  - Blister [None]
  - Colitis [None]
  - Diarrhoea [None]
  - Dehydration [None]
  - Rash erythematous [None]

NARRATIVE: CASE EVENT DATE: 20140823
